FAERS Safety Report 14974192 (Version 1)
Quarter: 2018Q2

REPORT INFORMATION
  Report Type: Spontaneous
  Country: KR (occurrence: KR)
  Receive Date: 20180605
  Receipt Date: 20180605
  Transmission Date: 20180711
  Serious: Yes (Other)
  Sender: FDA-Public Use
  Company Number: KR-MYLANLABS-2018M1037556

PATIENT
  Age: 45 Year
  Sex: Female
  Weight: 45.6 kg

DRUGS (6)
  1. HEPARIN [Suspect]
     Active Substance: HEPARIN SODIUM
     Indication: PRODUCT USED FOR UNKNOWN INDICATION
     Route: 065
  2. INSULIN [Concomitant]
     Active Substance: INSULIN NOS
     Indication: PRODUCT USED FOR UNKNOWN INDICATION
     Dosage: BOLUS DOSE
     Route: 065
  3. SODIUM BICARBONATE. [Concomitant]
     Active Substance: SODIUM BICARBONATE
     Indication: METABOLIC ACIDOSIS
     Dosage: 80MEQ/L MIXED WITH SALINE
     Route: 065
  4. DEXTROSE. [Concomitant]
     Active Substance: DEXTROSE
     Indication: PRODUCT USED FOR UNKNOWN INDICATION
     Dosage: INFUSION
  5. CALCIUM CHLORIDE. [Concomitant]
     Active Substance: CALCIUM CHLORIDE
     Indication: PRODUCT USED FOR UNKNOWN INDICATION
     Route: 065
  6. SALINE                             /00075401/ [Concomitant]
     Active Substance: SODIUM CHLORIDE
     Indication: METABOLIC ACIDOSIS
     Dosage: INFUSION GIVEN WITH SODIUM BICARBONATE
     Route: 065

REACTIONS (3)
  - Procedural haemorrhage [Recovered/Resolved]
  - Coagulopathy [Recovering/Resolving]
  - Thoracic haemorrhage [Recovered/Resolved]
